FAERS Safety Report 25898964 (Version 1)
Quarter: 2025Q4

REPORT INFORMATION
  Report Type: Report from Study
  Country: IN (occurrence: IN)
  Receive Date: 20251009
  Receipt Date: 20251009
  Transmission Date: 20260119
  Serious: Yes (Other)
  Sender: ROCHE
  Company Number: IN-ROCHE-10000379342

PATIENT
  Age: 40 Year
  Sex: Male

DRUGS (9)
  1. CELLCEPT [Suspect]
     Active Substance: MYCOPHENOLATE MOFETIL
     Indication: Renal transplant
     Route: 048
     Dates: start: 20210904
  2. PREDNISOLONE [Concomitant]
     Active Substance: PREDNISOLONE
     Dosage: 20
  3. PROGRAF [Concomitant]
     Active Substance: TACROLIMUS
  4. Septran [Concomitant]
  5. Valsted [Concomitant]
  6. NIFEDIPINE [Concomitant]
     Active Substance: NIFEDIPINE
  7. CARVEDILOL [Concomitant]
     Active Substance: CARVEDILOL
  8. Apixator [Concomitant]
     Dosage: 2.5
  9. MEROPENEM [Concomitant]
     Active Substance: MEROPENEM
     Dosage: 1 GM IN 100 ML

REACTIONS (1)
  - Delayed graft function [Unknown]
